FAERS Safety Report 5722069-4 (Version None)
Quarter: 2008Q2

REPORT INFORMATION
  Report Type: 
  Country: None (occurrence: None)
  Receive Date: 20080429
  Receipt Date: 20080422
  Transmission Date: 20081010
  Serious: Yes (Other)
  Sender: FDA-Public Use
  Company Number: US-GENENTECH-256654

PATIENT
  Age: 32 Year
  Sex: Female

DRUGS (4)
  1. RAPTIVA [Suspect]
     Indication: PSORIASIS
     Dosage: 0.7 ML, 1/WEEK
     Route: 058
     Dates: start: 20040201
  2. SORIATANE [Concomitant]
     Indication: DRUG USE FOR UNKNOWN INDICATION
  3. PUVA [Concomitant]
     Indication: DRUG USE FOR UNKNOWN INDICATION
  4. CYCLOSPORINE [Concomitant]
     Indication: PSORIASIS

REACTIONS (3)
  - CHOLELITHIASIS [None]
  - MALIGNANT MELANOMA [None]
  - URINARY TRACT INFECTION [None]
